FAERS Safety Report 11694041 (Version 1)
Quarter: 2015Q4

REPORT INFORMATION
  Report Type: Spontaneous
  Country: KR (occurrence: KR)
  Receive Date: 20151103
  Receipt Date: 20151103
  Transmission Date: 20160304
  Serious: Yes (Other)
  Sender: FDA-Public Use
  Company Number: KR-HQ SPECIALTY-KR-2015INT000622

PATIENT
  Age: 10 Year
  Sex: Female

DRUGS (5)
  1. CISPLATIN. [Suspect]
     Active Substance: CISPLATIN
     Indication: OSTEOSARCOMA
     Dosage: 120 MG/M2, ON DAY 1
  2. DOXORUBICIN [Suspect]
     Active Substance: DOXORUBICIN
     Indication: OSTEOSARCOMA
     Dosage: 25 MG/M2, 24 HOURS FOR 3 CONSECUTIVE DAYS
     Route: 042
  3. ALKYLATING AGENTS [Suspect]
     Active Substance: UNSPECIFIED INGREDIENT
     Indication: OSTEOSARCOMA
     Dosage: UNK
  4. MESNA. [Suspect]
     Active Substance: MESNA
     Indication: OSTEOSARCOMA
     Dosage: UNK, 3 CONSECUTIVE DAYS
     Route: 042
  5. IFOSFAMIDE. [Suspect]
     Active Substance: IFOSFAMIDE
     Indication: OSTEOSARCOMA
     Dosage: 2.5 G/M2, 24 HOURS FOR 3 CONSECUTIVE DAYS
     Route: 042

REACTIONS (1)
  - Metastases to breast [Recovered/Resolved]
